FAERS Safety Report 18278142 (Version 1)
Quarter: 2020Q3

REPORT INFORMATION
  Report Type: Spontaneous
  Country: DE (occurrence: DE)
  Receive Date: 20200917
  Receipt Date: 20200917
  Transmission Date: 20201103
  Serious: Yes (Hospitalization)
  Sender: FDA-Public Use
  Company Number: DE-ACCORD-201397

PATIENT
  Age: 62 Year
  Sex: Male

DRUGS (19)
  1. BUPROPION/BUPROPION HYDROCHLORIDE [Concomitant]
     Active Substance: BUPROPION HYDROCHLORIDE
     Dosage: 150 MG, AS NEEDED, TABLETS
  2. GLYCERYL TRINITRATE [Concomitant]
     Active Substance: NITROGLYCERIN
     Dosage: 0.4 MG, AS NEEDED, TABLETS
  3. TAMSULOSIN/TAMSULOSIN HYDROCHLORIDE [Concomitant]
     Active Substance: TAMSULOSIN HYDROCHLORIDE
     Dosage: 0.4 MG, 1?0?0?0, PROLONGED?RELEASE CAPSULE
  4. FORMOTEROL [Concomitant]
     Active Substance: FORMOTEROL
     Dosage: 12 UG, 1?0?0?0, CAPSULES FOR INHALATION
  5. TORASEMIDE [Suspect]
     Active Substance: TORSEMIDE
     Indication: PRODUCT USED FOR UNKNOWN INDICATION
     Dosage: 20 MG, 2?2?0?0, TABLETS
  6. SALBUTAMOL [Concomitant]
     Active Substance: ALBUTEROL
     Dosage: 0.1 MG, AS NEEDED, METERED DOSE INHALER
  7. ACETYLSALICYLIC ACID [Concomitant]
     Active Substance: ASPIRIN
     Dosage: 100 MG, 0?1?0?0, METERED DOSE INHALER
  8. SPIRONOLACTONE. [Suspect]
     Active Substance: SPIRONOLACTONE
     Indication: PRODUCT USED FOR UNKNOWN INDICATION
     Dosage: 50 MG, 0.5?0?0?0, TABLETS
  9. IBUPROFEN. [Suspect]
     Active Substance: IBUPROFEN
     Indication: PRODUCT USED FOR UNKNOWN INDICATION
     Dosage: 600 MG, 1?0?0?0
  10. VERAPAMIL [Concomitant]
     Active Substance: VERAPAMIL HYDROCHLORIDE
     Dosage: 120 MG, 1?0?1?0, TABLETS
  11. OMEPRAZOLE. [Concomitant]
     Active Substance: OMEPRAZOLE
     Dosage: 40 MG, 0?0?1?0, CAPSULES
  12. ACTRAPID [Concomitant]
     Active Substance: INSULIN HUMAN
     Dosage: ACCORDING TO PLAN, SOLUTION FOR INJECTION / INFUSION
     Route: 058
  13. EZETIMIBE. [Suspect]
     Active Substance: EZETIMIBE
     Indication: PRODUCT USED FOR UNKNOWN INDICATION
     Dosage: 10 MG, 1?0?0?0, TABLETS
  14. LERCANIDIPINE [Suspect]
     Active Substance: LERCANIDIPINE
     Indication: PRODUCT USED FOR UNKNOWN INDICATION
     Dosage: 20 MG, 0.5?0?0.5?0, TABLETS
  15. INDAPAMIDE/PERINDOPRIL [Suspect]
     Active Substance: INDAPAMIDE\PERINDOPRIL
     Indication: PRODUCT USED FOR UNKNOWN INDICATION
     Dosage: 1.25/5 MG, 1?0?0?0, TABLETS
  16. ATORVASTATIN/ATORVASTATIN CALCIUM [Suspect]
     Active Substance: ATORVASTATIN CALCIUM
     Indication: PRODUCT USED FOR UNKNOWN INDICATION
     Dosage: 40 MG, 0?0?1?0, TABLETS
  17. COLECALCIFEROL [Concomitant]
     Active Substance: CHOLECALCIFEROL
     Dosage: (VITAMIN D), 1000 IU, 0?1?0?0, CAPSULES
  18. PREGABALIN. [Concomitant]
     Active Substance: PREGABALIN
     Dosage: 75 MG, 1?0?1?0, CAPSULES
  19. INSULIN GLARGINE [Concomitant]
     Active Substance: INSULIN GLARGINE
     Dosage: ACCORDING TO PLAN, SOLUTION FOR INJECTION / INFUSION
     Route: 058

REACTIONS (6)
  - Oedema peripheral [Recovering/Resolving]
  - Dry skin [Recovering/Resolving]
  - Condition aggravated [Recovering/Resolving]
  - Acute kidney injury [Recovering/Resolving]
  - Rash [Recovering/Resolving]
  - Dyspnoea exertional [Recovering/Resolving]
